FAERS Safety Report 7373109-0 (Version None)
Quarter: 2011Q1

REPORT INFORMATION
  Report Type: 
  Country: None (occurrence: None)
  Receive Date: 20110324
  Receipt Date: 20110320
  Transmission Date: 20110831
  Serious: Yes (Hospitalization, Other)
  Sender: FDA-Public Use
  Company Number: US-ABBOTT-11P-163-0700925-00

PATIENT
  Age: 71 Year
  Sex: Male

DRUGS (10)
  1. LIALDA [Concomitant]
     Indication: CROHN'S DISEASE
  2. COUMADIN [Concomitant]
     Indication: THROMBOSIS
  3. FERROUS SULFATE TAB [Concomitant]
     Indication: MINERAL SUPPLEMENTATION
  4. IMURAN [Concomitant]
     Indication: CROHN'S DISEASE
     Dosage: 200 MG DAILY
  5. ASPIRIN [Concomitant]
     Indication: PROPHYLAXIS
  6. PREDNISONE [Concomitant]
     Indication: CROHN'S DISEASE
  7. COUMADIN [Concomitant]
     Dosage: 7.5 MG 3X/WK AND 5 MG 2X/WK
  8. METOPROLOL [Concomitant]
     Indication: HYPERTENSION
  9. HUMIRA [Suspect]
     Indication: CROHN'S DISEASE
     Dates: start: 20101215
  10. AMLODIPINE [Concomitant]
     Indication: HYPERTENSION

REACTIONS (2)
  - DEHYDRATION [None]
  - ARTERIAL OCCLUSIVE DISEASE [None]
